FAERS Safety Report 14354841 (Version 1)
Quarter: 2018Q1

REPORT INFORMATION
  Report Type: Spontaneous
  Country: FR (occurrence: FR)
  Receive Date: 20180105
  Receipt Date: 20180105
  Transmission Date: 20180509
  Serious: Yes (Other)
  Sender: FDA-Public Use
  Company Number: FR-AUROBINDO-AUR-APL-2018-000237

PATIENT
  Age: 29 Year
  Sex: Female
  Weight: 64 kg

DRUGS (3)
  1. FLUCONAZOLE ARROW? 200 MG CAPSULE [Suspect]
     Active Substance: FLUCONAZOLE
     Indication: INFECTION
     Route: 048
     Dates: start: 20171025, end: 20171113
  2. CALCIPARINE [Suspect]
     Active Substance: HEPARIN CALCIUM
     Indication: PROPHYLAXIS
     Route: 058
     Dates: start: 20171027
  3. CLINDAMYCIN. [Suspect]
     Active Substance: CLINDAMYCIN
     Indication: INFECTION
     Route: 048
     Dates: start: 20171031, end: 20171113

REACTIONS (2)
  - Pruritus [Recovered/Resolved]
  - Eosinophilia [Recovering/Resolving]

NARRATIVE: CASE EVENT DATE: 20171104
